FAERS Safety Report 4773548-8 (Version None)
Quarter: 2005Q3

REPORT INFORMATION
  Report Type: 
  Country: None (occurrence: None)
  Receive Date: 20050920
  Receipt Date: 20041210
  Transmission Date: 20060218
  Serious: No
  Sender: FDA-Public Use
  Company Number: US-BRISTOL-MYERS SQUIBB COMPANY-12793048

PATIENT
  Age: 50 Year
  Sex: Male
  Weight: 82 kg

DRUGS (1)
  1. BUSPAR [Suspect]
     Indication: GENERALISED ANXIETY DISORDER
     Route: 048
     Dates: start: 20041205, end: 20041207

REACTIONS (2)
  - GENITAL RASH [None]
  - RASH [None]
